FAERS Safety Report 8565286-0 (Version None)
Quarter: 2012Q3

REPORT INFORMATION
  Report Type: 
  Country: None (occurrence: None)
  Receive Date: 20120803
  Receipt Date: 20120112
  Transmission Date: 20120928
  Serious: Yes (Other)
  Sender: FDA-Public Use
  Company Number: US-ROCHE-1094871

PATIENT
  Sex: Female

DRUGS (2)
  1. XOLAIR [Suspect]
     Indication: RHINITIS ALLERGIC
  2. XOLAIR [Suspect]
     Indication: ASTHMA
     Route: 065

REACTIONS (4)
  - TREMOR [None]
  - ARTHROPATHY [None]
  - WEIGHT INCREASED [None]
  - DYSPNOEA [None]
